FAERS Safety Report 11879687 (Version 1)
Quarter: 2015Q4

REPORT INFORMATION
  Report Type: Spontaneous
  Country: US (occurrence: US)
  Receive Date: 20151230
  Receipt Date: 20151230
  Transmission Date: 20160305
  Serious: Yes (Hospitalization, Other)
  Sender: FDA-Public Use
  Company Number: US-ELI_LILLY_AND_COMPANY-US201512007288

PATIENT
  Sex: Male

DRUGS (4)
  1. HUMALOG MIX75/25 [Suspect]
     Active Substance: INSULIN LISPRO
     Indication: TYPE 2 DIABETES MELLITUS
     Dosage: 30 U, EACH MORNING
     Route: 065
     Dates: start: 201511
  2. HUMALOG MIX75/25 [Suspect]
     Active Substance: INSULIN LISPRO
     Dosage: 6 U, BID
     Dates: end: 20151211
  3. HUMALOG MIX75/25 [Suspect]
     Active Substance: INSULIN LISPRO
     Dosage: 30 U, EACH EVENING
  4. NOVOLIN [Concomitant]
     Active Substance: INSULIN HUMAN
     Indication: PRODUCT USED FOR UNKNOWN INDICATION
     Dosage: UNK, UNKNOWN
     Route: 065

REACTIONS (7)
  - Blood pressure increased [Unknown]
  - Atrioventricular block [Unknown]
  - Blood cholesterol increased [Unknown]
  - Presyncope [Unknown]
  - Malaise [Unknown]
  - Heart rate increased [Unknown]
  - Blood glucose decreased [Unknown]

NARRATIVE: CASE EVENT DATE: 20151111
